FAERS Safety Report 8416149-2 (Version None)
Quarter: 2012Q2

REPORT INFORMATION
  Report Type: 
  Country: None (occurrence: None)
  Receive Date: 20120606
  Receipt Date: 20120601
  Transmission Date: 20120825
  Serious: Yes (Other)
  Sender: FDA-Public Use
  Company Number: US-PFIZER INC-2012132693

PATIENT
  Sex: Female
  Weight: 41.27 kg

DRUGS (2)
  1. CELEBREX [Concomitant]
     Dosage: UNK
  2. LYRICA [Suspect]
     Indication: FIBROMYALGIA
     Dosage: 50 MG, ONCE A DAY
     Route: 048

REACTIONS (1)
  - OSTEOARTHRITIS [None]
